FAERS Safety Report 25043652 (Version 2)
Quarter: 2025Q2

REPORT INFORMATION
  Report Type: Spontaneous
  Country: US (occurrence: US)
  Receive Date: 20250306
  Receipt Date: 20250403
  Transmission Date: 20250716
  Serious: No
  Sender: SUNOVION
  Company Number: US-SMPA-2024MYSCI0101013AA

PATIENT

DRUGS (2)
  1. ORGOVYX [Suspect]
     Active Substance: RELUGOLIX
     Indication: Prostate cancer
     Route: 048
  2. ORGOVYX [Suspect]
     Active Substance: RELUGOLIX
     Dosage: 120 MG, QD
     Route: 048

REACTIONS (7)
  - Bladder disorder [Unknown]
  - Gastrointestinal disorder [Unknown]
  - Hypoacusis [Unknown]
  - Memory impairment [Unknown]
  - Abdominal discomfort [Unknown]
  - Asthenia [Unknown]
  - Fatigue [Unknown]
